FAERS Safety Report 13908334 (Version 1)
Quarter: 2017Q3

REPORT INFORMATION
  Report Type: Spontaneous
  Country: US (occurrence: US)
  Receive Date: 20170826
  Receipt Date: 20170826
  Transmission Date: 20171127
  Serious: Yes (Other)
  Sender: FDA-Public Use
  Company Number: US-ENDO PHARMACEUTICALS INC-2017-000319

PATIENT
  Sex: Female
  Weight: 23.6 kg

DRUGS (7)
  1. CELLCEPT [Concomitant]
     Active Substance: MYCOPHENOLATE MOFETIL\MYCOPHENOLATE MOFETIL HYDROCHLORIDE
     Indication: PRODUCT USED FOR UNKNOWN INDICATION
     Dosage: UNK, BID
     Route: 065
  2. PREDNISONE TABLETS [Suspect]
     Active Substance: PREDNISONE
     Indication: AUTOIMMUNE DISORDER
     Dosage: 4 MG, DAILY
     Route: 048
     Dates: end: 201510
  3. PREVACID [Concomitant]
     Active Substance: LANSOPRAZOLE
     Indication: PRODUCT USED FOR UNKNOWN INDICATION
     Dosage: UNK, DAILY
     Route: 065
  4. PREDNISONE TABLETS [Suspect]
     Active Substance: PREDNISONE
     Dosage: 10 MG, DAILY
     Route: 048
     Dates: start: 201510, end: 201602
  5. PREDNISONE TABLETS [Suspect]
     Active Substance: PREDNISONE
     Dosage: 6 MG, DAILY IN AM
     Route: 048
     Dates: start: 201602
  6. PREDNISONE TABLETS [Suspect]
     Active Substance: PREDNISONE
     Dosage: 15 MG, DAILY
     Route: 048
  7. PREDNISOLONE SODIUM PHOSPHATE ORAL SOLUTION 15MG/5ML [Suspect]
     Active Substance: PREDNISOLONE SODIUM PHOSPHATE
     Indication: AUTOIMMUNE DISORDER
     Dosage: 5 ML, DAILY
     Route: 048
     Dates: start: 2016

REACTIONS (7)
  - Cushingoid [Unknown]
  - Dyslipidaemia [Unknown]
  - Condition aggravated [None]
  - Autoimmune lymphoproliferative syndrome [None]
  - Bone density decreased [Unknown]
  - Overweight [None]
  - Growth retardation [Unknown]
